FAERS Safety Report 5642480-X (Version None)
Quarter: 2008Q1

REPORT INFORMATION
  Report Type: 
  Country: None (occurrence: None)
  Receive Date: 20080227
  Receipt Date: 20080227
  Transmission Date: 20080703
  Serious: Yes (Disabling, Other)
  Sender: FDA-Public Use
  Company Number: None

PATIENT
  Age: 53 Year
  Sex: Male

DRUGS (12)
  1. FOSAMAX [Suspect]
     Indication: OSTEOPOROSIS
     Dosage: 10MG/DAILY  : 70MG/WK
     Dates: start: 20000901, end: 20020901
  2. FOSAMAX [Suspect]
     Indication: OSTEOPOROSIS
     Dosage: 10MG/DAILY  : 70MG/WK
     Dates: start: 20020901, end: 20061001
  3. PERCOCET [Concomitant]
  4. LIPITOR [Concomitant]
  5. ROXICET [Concomitant]
  6. CHLORHEXIDINE RINSE [Concomitant]
  7. AMITRIPTYLINE HCL [Concomitant]
  8. CELEBREX [Concomitant]
  9. DOXAZOSIN MESYLATE [Concomitant]
  10. PRILOSEC [Concomitant]
  11. GLUCOSAMINE [Concomitant]
  12. PREDNISONE TAB [Concomitant]

REACTIONS (5)
  - BONE GRAFT [None]
  - FISTULA [None]
  - OSTEOMYELITIS [None]
  - OSTEONECROSIS [None]
  - PATHOLOGICAL FRACTURE [None]
